FAERS Safety Report 17919407 (Version 2)
Quarter: 2025Q4

REPORT INFORMATION
  Report Type: Spontaneous
  Country: US (occurrence: US)
  Receive Date: 20200619
  Receipt Date: 20251208
  Transmission Date: 20260119
  Serious: Yes (Other)
  Sender: CATALYST PHARMA
  Company Number: US-CATALYST PHARMACEUTICALS, INC-2020CAT00185

PATIENT
  Age: 72 Year
  Sex: Female
  Weight: 73.469 kg

DRUGS (33)
  1. FIRDAPSE [Suspect]
     Active Substance: AMIFAMPRIDINE PHOSPHATE
     Indication: Myasthenic syndrome
     Dosage: 10 MG, 3X/DAY (ONE TABLET THREE TIMES A DAY)
     Route: 048
     Dates: start: 20190322
  2. FIRDAPSE [Suspect]
     Active Substance: AMIFAMPRIDINE PHOSPHATE
     Dosage: 10 MG, 2X/DAY
     Route: 048
  3. FIRDAPSE [Suspect]
     Active Substance: AMIFAMPRIDINE PHOSPHATE
     Dosage: 10 MG, 2X/DAY
     Route: 048
  4. FIRDAPSE [Suspect]
     Active Substance: AMIFAMPRIDINE PHOSPHATE
     Dosage: TWO 10 MG TABLETS TWO TIMES PER DAY
     Route: 048
     Dates: start: 20250922
  5. MESTINON [Concomitant]
     Active Substance: PYRIDOSTIGMINE BROMIDE
     Indication: Myasthenic syndrome
     Dosage: 60 MG, 4X/DAY
     Route: 065
  6. LISINOPRIL [Concomitant]
     Active Substance: LISINOPRIL
     Indication: Hypertension
     Dosage: 40 MG, 1X/DAY
     Route: 065
  7. DILTIAZEM [Concomitant]
     Active Substance: DILTIAZEM
     Indication: Atrial fibrillation
     Dosage: 120 MG, 1X/DAY
     Route: 065
  8. XARELTO [Concomitant]
     Active Substance: RIVAROXABAN
     Indication: Atrial fibrillation
     Dosage: 20 MG, 1X/DAY
     Route: 065
  9. CARVEDILOL [Concomitant]
     Active Substance: CARVEDILOL
     Indication: Atrial fibrillation
     Dosage: 12.5 MG, 2X/DAY
     Route: 065
  10. SIMVASTATIN [Concomitant]
     Active Substance: SIMVASTATIN
     Indication: Dyslipidaemia
     Dosage: 40 MG, 1X/DAY
     Route: 065
  11. ZETIA [Concomitant]
     Active Substance: EZETIMIBE
     Indication: Dyslipidaemia
     Dosage: 10 MG, 1X/DAY AT NIGHT
     Route: 065
  12. RANITIDINE [Concomitant]
     Active Substance: RANITIDINE
     Indication: Gastritis
     Dosage: 150 MG, 2X/DAY
     Route: 065
  13. SERTRALINE [Concomitant]
     Active Substance: SERTRALINE HYDROCHLORIDE
     Indication: Depression
     Dosage: 200 MG, 1X/DAY AT NIGHT
     Route: 065
  14. SERTRALINE [Concomitant]
     Active Substance: SERTRALINE HYDROCHLORIDE
     Dosage: 30 MG
     Route: 065
  15. ZOLPIDEM [Concomitant]
     Active Substance: ZOLPIDEM TARTRATE
     Indication: Insomnia
     Dosage: 10 MG, 1X/DAY AT NIGHT
     Route: 065
  16. ZOLPIDEM [Concomitant]
     Active Substance: ZOLPIDEM TARTRATE
     Dosage: 5 MG
     Route: 065
  17. TRADJENTA [Concomitant]
     Active Substance: LINAGLIPTIN
     Indication: Type 2 diabetes mellitus
     Dosage: 5 MG, 1X/DAY MORNING
     Route: 065
  18. GLIMEPIRIDE [Concomitant]
     Active Substance: GLIMEPIRIDE
     Indication: Type 2 diabetes mellitus
     Dosage: 2 MG, 1X/DAY
     Route: 065
  19. ALLEGRA [Concomitant]
     Active Substance: FEXOFENADINE HYDROCHLORIDE
     Indication: Hypersensitivity
     Dosage: 180 MG, 1X/DAY AT NIGHT
     Route: 065
  20. LOVAZA [Concomitant]
     Active Substance: OMEGA-3-ACID ETHYL ESTERS
     Indication: Dyslipidaemia
     Dosage: 2 G, 2X/DAY
     Route: 065
  21. CALCIUM CARBONATE\VITAMIN D [Concomitant]
     Active Substance: CALCIUM CARBONATE\VITAMIN D
     Indication: Hypovitaminosis
     Dosage: 1 DOSAGE UNITS, 2X/DAY
     Route: 065
  22. MYCOPHENOLIC ACID [Concomitant]
     Active Substance: MYCOPHENOLIC ACID
     Indication: Myasthenic syndrome
     Dosage: 1000 MG, 2X/DAY
     Route: 065
  23. PREDNISONE [Concomitant]
     Active Substance: PREDNISONE
     Indication: Myasthenic syndrome
     Dosage: 10 MG
     Route: 065
  24. GEMTESA [Concomitant]
     Active Substance: VIBEGRON
     Indication: Cystitis
     Dosage: 75 MG DAILY
     Route: 065
  25. ELIQUIS [Concomitant]
     Active Substance: APIXABAN
     Indication: Product used for unknown indication
     Dosage: 2.5 MG, 2X/DAY
     Route: 065
  26. CHLORTHALIDONE [Concomitant]
     Active Substance: CHLORTHALIDONE
     Indication: Product used for unknown indication
     Dosage: 12.5 MG, 1X/DAY
     Route: 065
  27. TRAMADOL [Concomitant]
     Active Substance: TRAMADOL
     Indication: Product used for unknown indication
     Dosage: 50 MG, 2X/DAY
     Route: 065
  28. OXCARBAZEPINE [Concomitant]
     Active Substance: OXCARBAZEPINE
     Indication: Product used for unknown indication
     Dosage: 150 MG, 2X/DAY
     Route: 065
  29. MYRBETRIQ [Concomitant]
     Active Substance: MIRABEGRON
     Indication: Product used for unknown indication
     Dosage: 25 MG, 1X/DAY
     Route: 065
  30. VITAMIN E [Concomitant]
     Active Substance: .ALPHA.-TOCOPHEROL
     Indication: Product used for unknown indication
     Dosage: 400 UNKNOWN, 2X/DAY
     Route: 065
  31. AMBIEN [Concomitant]
     Active Substance: ZOLPIDEM TARTRATE
     Indication: Product used for unknown indication
     Dosage: 5 MG, 1X/DAY AT BEDTIME
     Route: 065
  32. CIPRO [Concomitant]
     Active Substance: CIPROFLOXACIN HYDROCHLORIDE
     Indication: Cystitis
     Dosage: 250 MG
     Route: 065
  33. AMOXICILLIN\CLAVULANATE POTASSIUM [Concomitant]
     Active Substance: AMOXICILLIN\CLAVULANATE POTASSIUM
     Indication: Cystitis
     Dosage: 875/125 MG
     Route: 065

REACTIONS (8)
  - Shoulder fracture [Not Recovered/Not Resolved]
  - Dry mouth [Not Recovered/Not Resolved]
  - Hypoaesthesia [Not Recovered/Not Resolved]
  - Hypoaesthesia oral [Not Recovered/Not Resolved]
  - Condition aggravated [Not Recovered/Not Resolved]
  - Paraesthesia [Not Recovered/Not Resolved]
  - Paraesthesia oral [Not Recovered/Not Resolved]
  - Condition aggravated [Not Recovered/Not Resolved]

NARRATIVE: CASE EVENT DATE: 20250901
